FAERS Safety Report 7804445-9 (Version None)
Quarter: 2011Q4

REPORT INFORMATION
  Report Type: 
  Country: None (occurrence: None)
  Receive Date: 20111010
  Receipt Date: 20110913
  Transmission Date: 20120403
  Serious: No
  Sender: FDA-Public Use
  Company Number: US-BAYER-2011-091947

PATIENT
  Sex: Male

DRUGS (1)
  1. MIRENA [Suspect]
     Route: 061

REACTIONS (1)
  - GENITAL PAIN [None]
